FAERS Safety Report 5322610-X (Version None)
Quarter: 2007Q2

REPORT INFORMATION
  Report Type: 
  Country: None (occurrence: None)
  Receive Date: 20070511
  Receipt Date: 20070503
  Transmission Date: 20071010
  Serious: Yes (Hospitalization)
  Sender: FDA-Public Use
  Company Number: ES-BRISTOL-MYERS SQUIBB COMPANY-13710298

PATIENT
  Age: 64 Year
  Sex: Female

DRUGS (10)
  1. ABATACEPT [Suspect]
     Indication: RHEUMATOID ARTHRITIS
     Route: 042
     Dates: start: 20060615
  2. LEFLUNOMIDE [Concomitant]
     Dates: start: 20060508
  3. NPH ILETIN II [Concomitant]
     Dates: start: 19960101
  4. METFORMIN HCL [Concomitant]
     Dates: start: 20000101
  5. AMLODIPINE [Concomitant]
     Dates: start: 20050801
  6. VENLAFAXINE HCL [Concomitant]
     Dates: start: 20050801
  7. LORMETAZEPAM [Concomitant]
     Dates: start: 20060401
  8. OMEPRAZOLE [Concomitant]
     Dates: start: 20000101
  9. ORLISTAT [Concomitant]
     Dates: start: 20060308
  10. COZAAR [Concomitant]
     Dates: start: 20061204

REACTIONS (1)
  - MESANGIOPROLIFERATIVE GLOMERULONEPHRITIS [None]
